FAERS Safety Report 23990671 (Version 2)
Quarter: 2024Q3

REPORT INFORMATION
  Report Type: Spontaneous
  Country: JP (occurrence: JP)
  Receive Date: 20240619
  Receipt Date: 20240722
  Transmission Date: 20241017
  Serious: Yes (Hospitalization, Other)
  Sender: IPSEN
  Company Number: JP-SERVIER-S24007273

PATIENT
  Age: 75 Year
  Sex: Female

DRUGS (4)
  1. ONIVYDE [Suspect]
     Active Substance: IRINOTECAN HYDROCHLORIDE
     Indication: Pancreatic carcinoma
     Dosage: 70 MG/M2, 1X/2WKS
     Route: 042
     Dates: start: 20220902, end: 202209
  2. ONIVYDE [Suspect]
     Active Substance: IRINOTECAN HYDROCHLORIDE
     Dosage: 70 MG/M2, 1X/2WKS
     Route: 042
     Dates: start: 20220930, end: 20220930
  3. LEVOLEUCOVORIN CALCIUM [Suspect]
     Active Substance: LEVOLEUCOVORIN CALCIUM
     Indication: Pancreatic carcinoma
     Dosage: 200 MG/M2
     Route: 042
     Dates: start: 20220902, end: 20220930
  4. FLUOROURACIL [Suspect]
     Active Substance: FLUOROURACIL
     Indication: Pancreatic carcinoma
     Dosage: 2400 MG/M2
     Route: 042
     Dates: start: 20220902, end: 20220930

REACTIONS (3)
  - Enterocolitis [Recovered/Resolved]
  - Cholangitis [Recovered/Resolved]
  - Obstructive pancreatitis [Recovered/Resolved]

NARRATIVE: CASE EVENT DATE: 20221013
